FAERS Safety Report 7486916-0 (Version None)
Quarter: 2011Q2

REPORT INFORMATION
  Report Type: 
  Country: None (occurrence: None)
  Receive Date: 20110517
  Receipt Date: 20100515
  Transmission Date: 20111010
  Serious: No
  Sender: FDA-Public Use
  Company Number: US-AMGEN-KDL412540

PATIENT
  Age: 61 Year
  Sex: Female

DRUGS (4)
  1. ENBREL [Suspect]
     Indication: RHEUMATOID ARTHRITIS
     Dosage: 50 MG, QWK
     Dates: start: 19990101
  2. SWINE FLU VACCINE, MONOVALENT [Concomitant]
     Dosage: UNK UNK, UNK
  3. PNEUMOCOCCAL VACCINE [Concomitant]
  4. METHOTREXATE [Concomitant]
     Dosage: UNK UNK, UNK

REACTIONS (7)
  - ARTHROPOD BITE [None]
  - LACERATION [None]
  - RHEUMATOID ARTHRITIS [None]
  - WEIGHT DECREASED [None]
  - NASOPHARYNGITIS [None]
  - BRONCHITIS [None]
  - MALAISE [None]
